FAERS Safety Report 16734303 (Version 2)
Quarter: 2019Q3

REPORT INFORMATION
  Report Type: Spontaneous
  Country: GP (occurrence: GP)
  Receive Date: 20190823
  Receipt Date: 20190930
  Transmission Date: 20191005
  Serious: Yes (Other)
  Sender: FDA-Public Use
  Company Number: GP-BRISTOL-MYERS SQUIBB COMPANY-BMS-2019-081350

PATIENT
  Age: 41 Year
  Sex: Male
  Weight: 68 kg

DRUGS (1)
  1. KENACORT [Suspect]
     Active Substance: TRIAMCINOLONE
     Indication: PRODUCT USED FOR UNKNOWN INDICATION
     Dosage: UNK
     Route: 065

REACTIONS (10)
  - Eye pain [Unknown]
  - Photophobia [Unknown]
  - Occupational exposure to product [Unknown]
  - Vitreous floaters [Unknown]
  - Visual acuity reduced [Unknown]
  - Conjunctival hyperaemia [Unknown]
  - Optic disc drusen [Unknown]
  - Ocular discomfort [Unknown]
  - Neovascularisation [Unknown]
  - Adverse event [Unknown]

NARRATIVE: CASE EVENT DATE: 201812
